FAERS Safety Report 5490573-2 (Version None)
Quarter: 2007Q4

REPORT INFORMATION
  Report Type: 
  Country: None (occurrence: None)
  Receive Date: 20071019
  Receipt Date: 20071010
  Transmission Date: 20080405
  Serious: Yes (Hospitalization)
  Sender: FDA-Public Use
  Company Number: US-JNJFOC-20071002872

PATIENT
  Sex: Female
  Weight: 49.9 kg

DRUGS (5)
  1. FENTANYL TRANSDERMAL SYSTEM [Suspect]
     Indication: PAIN
     Route: 062
  2. NON-STEROIDAL ANTI INFLAMMATORY [Suspect]
     Indication: PAIN
     Route: 050
  3. SYNTHROID [Concomitant]
     Indication: THYROID DISORDER
     Route: 048
  4. LISINOPRIL [Concomitant]
     Indication: BLOOD PRESSURE
     Route: 048
  5. HYDROXYZINE [Concomitant]
     Route: 048

REACTIONS (4)
  - RHABDOMYOLYSIS [None]
  - THERAPEUTIC RESPONSE DECREASED [None]
  - VOMITING [None]
  - WRONG TECHNIQUE IN DRUG USAGE PROCESS [None]
